FAERS Safety Report 25497214 (Version 1)
Quarter: 2025Q3

REPORT INFORMATION
  Report Type: Spontaneous
  Country: US (occurrence: US)
  Receive Date: 20250701
  Receipt Date: 20250701
  Transmission Date: 20251020
  Serious: Yes (Other)
  Sender: EMCURE PHARMACEUTICALS LTD
  Company Number: US-AVET LIFESCIENCES LTD-2025-AVET-000203

PATIENT
  Age: 8 Month
  Sex: Female

DRUGS (9)
  1. TACROLIMUS [Suspect]
     Active Substance: TACROLIMUS
     Indication: Prophylaxis against graft versus host disease
     Route: 065
  2. METHYLPREDNISOLONE [Suspect]
     Active Substance: METHYLPREDNISOLONE
     Indication: Prophylaxis against graft versus host disease
     Route: 065
  3. FLUDARABINE [Concomitant]
     Active Substance: FLUDARABINE PHOSPHATE
     Indication: Juvenile chronic myelomonocytic leukaemia
  4. CYTARABINE [Concomitant]
     Active Substance: CYTARABINE
     Indication: Juvenile chronic myelomonocytic leukaemia
  5. TRETINOIN [Concomitant]
     Active Substance: TRETINOIN
     Indication: Juvenile chronic myelomonocytic leukaemia
  6. 6-Mercatopurine [Concomitant]
     Indication: Juvenile chronic myelomonocytic leukaemia
  7. BUSULFAN [Concomitant]
     Active Substance: BUSULFAN
     Indication: Bone marrow conditioning regimen
     Route: 042
  8. MELPHALAN [Concomitant]
     Active Substance: MELPHALAN
     Indication: Bone marrow conditioning regimen
     Route: 042
  9. ANTI-THYMOCYTE GLOBULIN (RABBIT) NOS [Concomitant]
     Active Substance: LAPINE T-LYMPHOCYTE IMMUNE GLOBULIN
     Indication: Bone marrow conditioning regimen

REACTIONS (2)
  - Acute graft versus host disease in skin [Recovering/Resolving]
  - Off label use [Unknown]
